FAERS Safety Report 14990670 (Version 1)
Quarter: 2018Q2

REPORT INFORMATION
  Report Type: Spontaneous
  Country: US (occurrence: US)
  Receive Date: 20180608
  Receipt Date: 20180608
  Transmission Date: 20180711
  Serious: No
  Sender: FDA-Public Use
  Company Number: US-ROCHE-2096117

PATIENT
  Age: 74 Year
  Sex: Female
  Weight: 68.1 kg

DRUGS (2)
  1. ACTEMRA [Suspect]
     Active Substance: TOCILIZUMAB
     Indication: RHEUMATOID ARTHRITIS
     Dosage: ONGOING:YES
     Route: 058
     Dates: start: 2016, end: 20180220
  2. FORTEO [Concomitant]
     Active Substance: TERIPARATIDE
     Dosage: 1 INJECTION EVERY NIGHT
     Route: 065

REACTIONS (5)
  - Herpes zoster [Recovered/Resolved]
  - Scab [Not Recovered/Not Resolved]
  - Pain in extremity [Recovered/Resolved]
  - Pain [Recovered/Resolved]
  - Pruritus [Not Recovered/Not Resolved]

NARRATIVE: CASE EVENT DATE: 201803
